FAERS Safety Report 23684195 (Version 1)
Quarter: 2024Q1

REPORT INFORMATION
  Report Type: Report from Study
  Country: US (occurrence: US)
  Receive Date: 20240328
  Receipt Date: 20240328
  Transmission Date: 20240409
  Serious: Yes (Hospitalization, Other)
  Sender: FDA-Public Use
  Company Number: US-Amarin Pharma  Inc-2024AMR000126

PATIENT
  Age: 38 Year
  Sex: Male
  Weight: 265 kg

DRUGS (4)
  1. VASCEPA [Suspect]
     Active Substance: ICOSAPENT ETHYL
     Indication: Blood triglycerides
     Route: 048
     Dates: start: 2018, end: 2022
  2. VASCEPA [Suspect]
     Active Substance: ICOSAPENT ETHYL
     Route: 048
     Dates: start: 2022, end: 20240304
  3. OMEPRAZOLE [Concomitant]
     Active Substance: OMEPRAZOLE
  4. FISH OIL [Concomitant]
     Active Substance: FISH OIL
     Indication: Product used for unknown indication

REACTIONS (5)
  - Pancreatitis [Unknown]
  - Blood triglycerides increased [Unknown]
  - Cholecystectomy [Unknown]
  - Prescribed underdose [Unknown]
  - Therapy interrupted [Unknown]

NARRATIVE: CASE EVENT DATE: 20180101
